FAERS Safety Report 11167558 (Version 1)
Quarter: 2015Q2

REPORT INFORMATION
  Report Type: Spontaneous
  Country: US (occurrence: None)
  Receive Date: 20150604
  Receipt Date: 20150604
  Transmission Date: 20150821
  Serious: Yes (Disabling)
  Sender: FDA-Public Use
  Company Number: None

PATIENT
  Age: 57 Year
  Sex: Female
  Weight: 68.04 kg

DRUGS (2)
  1. INVEGA SUSTENNA [Suspect]
     Active Substance: PALIPERIDONE PALMITATE
     Indication: SCHIZOPHRENIA
     Dosage: 234 MG IM 4 WEEKS
     Route: 030
     Dates: start: 20100901
  2. SERRAQUIL [Concomitant]

REACTIONS (4)
  - Acne [None]
  - Skin ulcer [None]
  - Dyskinesia [None]
  - Hyperaesthesia [None]

NARRATIVE: CASE EVENT DATE: 20101201
